FAERS Safety Report 23067863 (Version 1)
Quarter: 2023Q4

REPORT INFORMATION
  Report Type: Spontaneous
  Country: US (occurrence: US)
  Receive Date: 20231016
  Receipt Date: 20231016
  Transmission Date: 20240110
  Serious: No
  Sender: FDA-Public Use
  Company Number: US-Ipsen Biopharmaceuticals, Inc.-2023-23591

PATIENT
  Age: 58 Year
  Sex: Female
  Weight: 81 kg

DRUGS (6)
  1. DYSPORT [Suspect]
     Active Substance: ABOBOTULINUMTOXINA
     Indication: Skin wrinkling
     Dosage: FOREHEAD- 10, GLABELLA- 20, BROW LIFT- 4 ON EACH SIDE, DAO- 2 ON EACH SIDE, PLATYSMAL BANDS- 24, NEC
     Route: 065
     Dates: start: 20230324, end: 20230324
  2. DYSPORT [Suspect]
     Active Substance: ABOBOTULINUMTOXINA
     Indication: Skin wrinkling
     Dosage: FOREHEAD- 20, GLABELLA- 23, BROW LIFT- 2 ON EACH SIDE, DAO- 3 ON EACH SIDE, CHIN- 4, LIP FLIP- 9
     Route: 065
     Dates: start: 20230610, end: 20230610
  3. DYSPORT [Suspect]
     Active Substance: ABOBOTULINUMTOXINA
     Indication: Skin wrinkling
     Dosage: CANTHUS- 6 ON EACH SIDE
     Route: 065
     Dates: start: 20230614, end: 20230614
  4. DYSPORT [Suspect]
     Active Substance: ABOBOTULINUMTOXINA
     Indication: Skin wrinkling
     Dosage: FOREHEAD- 10, GLABELLA- 20, BROW LIFT- 4 ON EACH SIDE, DAO- 3.5 ON EACH SIDE, LIP FLIP- 10
     Route: 065
     Dates: start: 20230624, end: 20230624
  5. DYSPORT [Suspect]
     Active Substance: ABOBOTULINUMTOXINA
     Indication: Off label use
     Dosage: DAO- 4 ON EACH SIDE
     Route: 065
     Dates: start: 20230801, end: 20230801
  6. DYSPORT [Suspect]
     Active Substance: ABOBOTULINUMTOXINA
     Dosage: FOREHEAD- 23, GLABELLA- 20, BROW LIFT- 3 ON EACH SIDE, CANTHUS- 6 ON EACH SIDE, CHIN- 4, DAO- 4 ON E
     Route: 065
     Dates: start: 20231005, end: 20231005

REACTIONS (5)
  - Paraesthesia [Unknown]
  - Discomfort [Unknown]
  - Off label use [Unknown]
  - Drug ineffective [Unknown]
  - Off label use [Unknown]

NARRATIVE: CASE EVENT DATE: 20230101
